FAERS Safety Report 5153271-0 (Version None)
Quarter: 2006Q4

REPORT INFORMATION
  Report Type: 
  Country: None (occurrence: None)
  Receive Date: 20061116
  Receipt Date: 20061116
  Transmission Date: 20070319
  Serious: No
  Sender: FDA-Public Use
  Company Number: None

PATIENT
  Sex: Male
  Weight: 101.6057 kg

DRUGS (1)
  1. PRIMIDONE [Suspect]
     Indication: TREMOR
     Dosage: 12.5MG  ONCE A DAY  ORAL
     Route: 048
     Dates: start: 20061018, end: 20061024

REACTIONS (1)
  - ATRIAL FLUTTER [None]
